FAERS Safety Report 4610368-9 (Version None)
Quarter: 2005Q1

REPORT INFORMATION
  Report Type: 
  Country: None (occurrence: None)
  Receive Date: 20050314
  Receipt Date: 20050303
  Transmission Date: 20050727
  Serious: Yes (Other)
  Sender: FDA-Public Use
  Company Number: 2005041538

PATIENT
  Sex: Female
  Weight: 63.5036 kg

DRUGS (11)
  1. LIPITOR [Suspect]
     Indication: BLOOD CHOLESTEROL INCREASED
     Dosage: 10 MG (10 MG, 1 IN 1 D)
     Dates: end: 20050224
  2. BENAZEPRIL HCL [Concomitant]
  3. ASPIRIN [Concomitant]
  4. MULTIVITAMIS (ASCORBIC AID, ERGOCALCIFEROL, FOLIC ACID, NICOTINAMIDE, [Concomitant]
  5. POLICOSANOL (POLICOSANOL) [Concomitant]
  6. ALL OTHER THERAPEUTIC PRODUCTS (ALL OTHER THERAPEUTIC PRODUCTS) [Concomitant]
  7. CALCIUM (CALCIUM) [Concomitant]
  8. ERGOCALCIFEROL (ERGOCALCIFEROL) [Concomitant]
  9. POTASSIUM ACETATE [Concomitant]
  10. SALBUTAMOL (SALBUTAMOL) [Concomitant]
  11. MAGNESIUM (MAGNESIUM) [Concomitant]

REACTIONS (5)
  - ACUTE RESPIRATORY DISTRESS SYNDROME [None]
  - DRUG EFFECT DECREASED [None]
  - HERPES SIMPLEX [None]
  - MUSCLE SPASMS [None]
  - PAIN [None]
